FAERS Safety Report 7154390-X (Version None)
Quarter: 2010Q4

REPORT INFORMATION
  Report Type: 
  Country: None (occurrence: None)
  Receive Date: 20101213
  Receipt Date: 20101130
  Transmission Date: 20110411
  Serious: Yes (Other)
  Sender: FDA-Public Use
  Company Number: CA-ELI_LILLY_AND_COMPANY-CA201011007602

PATIENT
  Sex: Female

DRUGS (16)
  1. ZYPREXA [Suspect]
     Indication: SCHIZOPHRENIA
     Dosage: 15 MG, DAILY (1/D)
     Route: 048
     Dates: start: 19970301
  2. ZYPREXA ZYDIS [Suspect]
     Indication: SCHIZOPHRENIA
     Dosage: 10 MG, UNK
     Route: 048
  3. ZYPREXA ZYDIS [Suspect]
     Dosage: 15 MG, DAILY (1/D)
     Route: 048
  4. NOVO-OLANZAPINE [Concomitant]
     Indication: SCHIZOPHRENIA
     Dosage: UNK, UNKNOWN
     Route: 065
  5. PERPHENAZINE [Concomitant]
     Dosage: 6 MG, DAILY (1/D)
     Route: 048
  6. PERPHENAZINE [Concomitant]
     Dosage: 8 MG, DAILY (1/D)
     Route: 065
  7. CLONAZEPAM [Concomitant]
     Dosage: 0.5 MG, UNKNOWN
     Route: 065
  8. SEROQUEL [Concomitant]
     Dosage: 25 MG, UNKNOWN
     Route: 065
  9. EPIVAL [Concomitant]
     Dosage: 250 MG, UNKNOWN
     Route: 065
  10. APO-DIVALPROEX [Concomitant]
     Dosage: 500 MG, UNKNOWN
     Route: 065
  11. RISPERDAL [Concomitant]
     Dosage: 0.5 MG, UNKNOWN
     Route: 065
  12. PROCHLORPERAZINE [Concomitant]
     Dosage: 5 MG, UNKNOWN
     Route: 065
  13. APO-BENZTROPINE [Concomitant]
     Dosage: 2 MG, UNKNOWN
     Route: 065
  14. ZELDOX [Concomitant]
     Dosage: UNK, UNKNOWN
     Route: 065
  15. ABILIFY [Concomitant]
     Dosage: UNK, UNKNOWN
     Route: 065
  16. MEDROXYPROGESTERONE [Concomitant]
     Dosage: UNK, UNKNOWN
     Route: 065

REACTIONS (14)
  - ACANTHOSIS [None]
  - BLOOD CHOLESTEROL INCREASED [None]
  - BLOOD PRESSURE INCREASED [None]
  - GOUT [None]
  - HIGH DENSITY LIPOPROTEIN DECREASED [None]
  - HYPERGLYCAEMIA [None]
  - HYPERTENSION [None]
  - HYPERTRIGLYCERIDAEMIA [None]
  - LYMPHOCYTE COUNT INCREASED [None]
  - METABOLIC SYNDROME [None]
  - POLYCYSTIC OVARIES [None]
  - PROTEIN URINE PRESENT [None]
  - TYPE 2 DIABETES MELLITUS [None]
  - WEIGHT INCREASED [None]
